FAERS Safety Report 9592313 (Version 1)
Quarter: 2013Q3

REPORT INFORMATION
  Report Type: Spontaneous
  Country: US (occurrence: None)
  Receive Date: 20130930
  Receipt Date: 20130930
  Transmission Date: 20140515
  Serious: Yes (Other)
  Sender: FDA-Public Use
  Company Number: 1000047421

PATIENT
  Age: 65 Year
  Sex: Female

DRUGS (11)
  1. LINZESS (LINACLOTIDE) (145 MICROGRAM, CAPSULES) [Suspect]
     Indication: IRRITABLE BOWEL SYNDROME
     Route: 048
     Dates: start: 20130730
  2. LINZESS (LINACLOTIDE) (145 MICROGRAM, CAPSULES) [Suspect]
     Indication: CONSTIPATION
     Route: 048
     Dates: start: 20130730
  3. PAROXETINE (PAROXETINE) [Concomitant]
  4. CLONAZEPAM (CLONAZEPAM) [Concomitant]
  5. TRAZODONE (TRAZODONE) [Concomitant]
  6. BUPROPION (BUPROPION) [Concomitant]
  7. NASONEX (MOMETASONE FUROATE) [Concomitant]
  8. ASPIRIN (ACETYLSALICYLIC ACID) [Concomitant]
  9. FIBERCON [Concomitant]
  10. VIT D (ERGOCALCIFEROL) [Concomitant]
  11. CALCIUM (CALCIUM) [Concomitant]

REACTIONS (1)
  - Diarrhoea [None]
